FAERS Safety Report 7688707-4 (Version None)
Quarter: 2011Q3

REPORT INFORMATION
  Report Type: 
  Country: None (occurrence: None)
  Receive Date: 20110817
  Receipt Date: 20110811
  Transmission Date: 20111222
  Serious: Yes (Hospitalization)
  Sender: FDA-Public Use
  Company Number: JP-GLAXOSMITHKLINE-B0720186A

PATIENT
  Sex: Male

DRUGS (8)
  1. DEPAKENE [Concomitant]
     Dosage: 600MG PER DAY
     Route: 048
     Dates: start: 20080101, end: 20110509
  2. VOLTAREN [Concomitant]
     Dates: end: 20110429
  3. DEPAKENE [Concomitant]
     Indication: EPILEPSY
     Route: 048
     Dates: start: 20040101
  4. DEPAKENE [Concomitant]
     Dosage: 400MG PER DAY
     Route: 048
  5. FLURBIPROFEN [Concomitant]
     Dates: end: 20110429
  6. LAMICTAL [Suspect]
     Indication: EPILEPSY
     Dosage: 75MG PER DAY
     Route: 048
     Dates: start: 20110416, end: 20110509
  7. DEPAKENE [Concomitant]
     Dosage: 800MG PER DAY
     Route: 048
     Dates: start: 20110518
  8. ANTIBIOTICS [Concomitant]
     Dates: end: 20110501

REACTIONS (8)
  - HEADACHE [None]
  - ORAL MUCOSAL ERYTHEMA [None]
  - OROPHARYNGEAL PAIN [None]
  - LYMPHADENOPATHY [None]
  - PYREXIA [None]
  - DRUG RASH WITH EOSINOPHILIA AND SYSTEMIC SYMPTOMS [None]
  - STEVENS-JOHNSON SYNDROME [None]
  - MOUTH ULCERATION [None]
